FAERS Safety Report 12082415 (Version 2)
Quarter: 2016Q2

REPORT INFORMATION
  Report Type: Report from Study
  Country: US (occurrence: US)
  Receive Date: 20160217
  Receipt Date: 20160401
  Transmission Date: 20160815
  Serious: No
  Sender: FDA-Public Use
  Company Number: PHEH2016US003438

PATIENT
  Sex: Male

DRUGS (2)
  1. ENTRESTO [Suspect]
     Active Substance: SACUBITRIL\VALSARTAN
     Indication: PRODUCT USED FOR UNKNOWN INDICATION
     Dosage: 50 MG, BID
     Route: 065
     Dates: start: 20160205
  2. ENTRESTO [Suspect]
     Active Substance: SACUBITRIL\VALSARTAN
     Dosage: 100 (49/51)MG, BID (1/2 TABLET IN THE MORNING AND 1/2 IN THE EVENING)
     Route: 065

REACTIONS (5)
  - Cough [Unknown]
  - Aphonia [Unknown]
  - Wrong technique in product usage process [Unknown]
  - Pain [Unknown]
  - Nasopharyngitis [Unknown]
